FAERS Safety Report 13667008 (Version 1)
Quarter: 2017Q2

REPORT INFORMATION
  Report Type: Spontaneous
  Country: US (occurrence: US)
  Receive Date: 20170619
  Receipt Date: 20170619
  Transmission Date: 20170830
  Serious: No
  Sender: FDA-Public Use
  Company Number: US-ROCHE-1324150

PATIENT
  Age: 85 Year
  Sex: Female

DRUGS (10)
  1. XELODA [Suspect]
     Active Substance: CAPECITABINE
     Indication: BREAST CANCER
     Dosage: 2 TABLETS  TWICE DAILY 14 DAYS ON, 7 DAYS OFF
     Route: 048
     Dates: start: 20131122
  2. LEVOTHYROXINE. [Concomitant]
     Active Substance: LEVOTHYROXINE
  3. ULTRAM [Concomitant]
     Active Substance: TRAMADOL HYDROCHLORIDE
  4. TRAMADOL. [Concomitant]
     Active Substance: TRAMADOL
  5. DOCUSATE SODIUM. [Concomitant]
     Active Substance: DOCUSATE SODIUM
  6. PROCHLORPERAZINE. [Concomitant]
     Active Substance: PROCHLORPERAZINE
  7. LISINOPRIL. [Concomitant]
     Active Substance: LISINOPRIL
  8. ASPIRIN. [Concomitant]
     Active Substance: ASPIRIN
  9. IBUPROFEN. [Concomitant]
     Active Substance: IBUPROFEN
  10. MELOXICAM. [Concomitant]
     Active Substance: MELOXICAM

REACTIONS (9)
  - Fatigue [Not Recovered/Not Resolved]
  - Skin discolouration [Not Recovered/Not Resolved]
  - Diarrhoea [Unknown]
  - Haematochezia [Not Recovered/Not Resolved]
  - Palmar-plantar erythrodysaesthesia syndrome [Unknown]
  - Nausea [Unknown]
  - Skin discolouration [Recovering/Resolving]
  - Dizziness [Recovered/Resolved]
  - Vomiting [Not Recovered/Not Resolved]

NARRATIVE: CASE EVENT DATE: 20140223
